FAERS Safety Report 4500793-9 (Version None)
Quarter: 2004Q4

REPORT INFORMATION
  Report Type: 
  Country: None (occurrence: None)
  Receive Date: 20041109
  Receipt Date: 20041027
  Transmission Date: 20050328
  Serious: Yes (Death)
  Sender: FDA-Public Use
  Company Number: HQWYE165129OCT04

PATIENT
  Age: 40 Year
  Sex: Female
  Weight: 129.39 kg

DRUGS (13)
  1. EFFEXOR [Suspect]
     Dosage: 150 MG TWICE DAILY AND 75 MG AT HS, ORAL
     Route: 048
  2. SEROQUEL [Suspect]
     Dosage: 100 MG 1 X PER 1 DAY
  3. TRAZODONE HCL [Concomitant]
  4. TOPAMAX [Concomitant]
  5. FLEXERIL [Concomitant]
  6. ZETIA [Concomitant]
  7. SINGULAIR [Concomitant]
  8. METFORMIN HCL [Concomitant]
  9. ACTOS [Concomitant]
  10. COZAAR [Concomitant]
  11. LOVASTATIN [Concomitant]
  12. VICODIN [Concomitant]
  13. MORPHINE SULFATE [Concomitant]

REACTIONS (9)
  - BACK PAIN [None]
  - CARDIAC FAILURE [None]
  - CARDIOMEGALY [None]
  - DISEASE RECURRENCE [None]
  - DRUG INTERACTION [None]
  - DRUG LEVEL INCREASED [None]
  - ELECTROCARDIOGRAM QT PROLONGED [None]
  - PELVIC PAIN [None]
  - PULMONARY OEDEMA [None]
